FAERS Safety Report 19000777 (Version 1)
Quarter: 2021Q1

REPORT INFORMATION
  Report Type: Spontaneous
  Country: DE (occurrence: DE)
  Receive Date: 20210311
  Receipt Date: 20210311
  Transmission Date: 20210420
  Serious: Yes (Other)
  Sender: FDA-Public Use
  Company Number: DE-TEVA-2021-DE-1887243

PATIENT
  Age: 60 Year
  Sex: Male

DRUGS (3)
  1. RAMIPRIL ABZ 5MG TABLETTEN [Suspect]
     Active Substance: RAMIPRIL
     Indication: HYPERTENSION
     Dosage: 5 MILLIGRAM DAILY; IN THE EVENING, FOR MANY YEARS
     Route: 048
     Dates: end: 20210302
  2. INSULIN INJEKTIONEN [Concomitant]
     Dosage: FOR YEARS
     Route: 065
  3. RAMIPRIL COMP. ABZ 5 MG/12,5 MG TABLETTEN [Suspect]
     Active Substance: HYDROCHLOROTHIAZIDE\RAMIPRIL
     Indication: HYPERTENSION
     Dosage: 1 DOSAGE FORMS DAILY; 1 DF: 5MG RAMIPRIL AND 12,5 MG HYDROCHLOROTHIAZIDE, IN THE MORNING, FOR MANY Y
     Route: 048
     Dates: end: 20210302

REACTIONS (3)
  - Swollen tongue [Recovered/Resolved]
  - Panic reaction [Recovered/Resolved]
  - Dyspnoea [Recovered/Resolved]

NARRATIVE: CASE EVENT DATE: 202010
